FAERS Safety Report 8546388-1 (Version None)
Quarter: 2012Q3

REPORT INFORMATION
  Report Type: 
  Country: None (occurrence: None)
  Receive Date: 20120727
  Receipt Date: 20120504
  Transmission Date: 20120928
  Serious: No
  Sender: FDA-Public Use
  Company Number: US-ASTRAZENECA-2012SE00689

PATIENT
  Age: 45 Year
  Sex: Female
  Weight: 65.3 kg

DRUGS (2)
  1. SEROQUEL XR [Suspect]
     Indication: BIPOLAR I DISORDER
     Route: 048
     Dates: start: 20070101
  2. LAMICTAL [Concomitant]

REACTIONS (8)
  - MULTIPLE ALLERGIES [None]
  - INSOMNIA [None]
  - CRYING [None]
  - MENTAL IMPAIRMENT [None]
  - BIPOLAR DISORDER [None]
  - DYSPHONIA [None]
  - MALAISE [None]
  - INTENTIONAL DRUG MISUSE [None]
